FAERS Safety Report 22236834 (Version 1)
Quarter: 2023Q2

REPORT INFORMATION
  Report Type: Spontaneous
  Country: US (occurrence: US)
  Receive Date: 20230420
  Receipt Date: 20230420
  Transmission Date: 20230721
  Serious: Yes (Other)
  Sender: FDA-Public Use
  Company Number: US-PRINSTON PHARMACEUTICAL INC.-2023PRN00158

PATIENT
  Age: 70 Year
  Sex: Female

DRUGS (4)
  1. METOPROLOL SUCCINATE [Suspect]
     Active Substance: METOPROLOL SUCCINATE
     Indication: Cardiac failure
  2. REMDESIVIR [Suspect]
     Active Substance: REMDESIVIR
     Indication: COVID-19 pneumonia
     Dosage: 200 MG; LOADING DOSE
  3. REMDESIVIR [Suspect]
     Active Substance: REMDESIVIR
     Dosage: SEVERAL MAINTENANCE DOSES
  4. DEXAMETHASONE [Concomitant]
     Active Substance: DEXAMETHASONE
     Indication: COVID-19 pneumonia

REACTIONS (3)
  - Potentiating drug interaction [Recovered/Resolved]
  - Atrioventricular block second degree [Recovered/Resolved]
  - Sinus bradycardia [Recovered/Resolved]
